FAERS Safety Report 6269995-8 (Version None)
Quarter: 2009Q3

REPORT INFORMATION
  Report Type: 
  Country: None (occurrence: None)
  Receive Date: 20090716
  Receipt Date: 20080207
  Transmission Date: 20100115
  Serious: Yes (Hospitalization, Other)
  Sender: FDA-Public Use
  Company Number: US-ASTRAZENECA-2007UW09733

PATIENT
  Age: 367 Month
  Sex: Male
  Weight: 72.6 kg

DRUGS (30)
  1. SEROQUEL [Suspect]
     Indication: SCHIZOPHRENIA
     Dosage: 25-300 MG
     Route: 048
     Dates: start: 19981207
  2. SEROQUEL [Suspect]
     Indication: DEPRESSION
     Dosage: 25-300 MG
     Route: 048
     Dates: start: 19981207
  3. SEROQUEL [Suspect]
     Route: 048
     Dates: start: 20000602
  4. SEROQUEL [Suspect]
     Route: 048
     Dates: start: 20000602
  5. SEROQUEL [Suspect]
     Dosage: 100 MG, 300 MG
     Route: 048
     Dates: start: 20000622, end: 20030308
  6. SEROQUEL [Suspect]
     Dosage: 100 MG, 300 MG
     Route: 048
     Dates: start: 20000622, end: 20030308
  7. SEROQUEL [Suspect]
     Dosage: 100 MG, 25 MG
     Route: 048
     Dates: start: 20030312, end: 20060206
  8. SEROQUEL [Suspect]
     Dosage: 100 MG, 25 MG
     Route: 048
     Dates: start: 20030312, end: 20060206
  9. SEROQUEL [Suspect]
     Dosage: 25 MG, 5 MG
     Route: 048
     Dates: start: 20060405, end: 20060606
  10. SEROQUEL [Suspect]
     Dosage: 25 MG, 5 MG
     Route: 048
     Dates: start: 20060405, end: 20060606
  11. ZYPREXA [Suspect]
     Dates: start: 20060706, end: 20070101
  12. ABILIFY [Concomitant]
     Dates: start: 20060615
  13. TRAZODONE [Concomitant]
  14. COMPAZINE [Concomitant]
     Dates: start: 19980101
  15. PROZAC [Concomitant]
     Dates: start: 19980101
  16. INSULIN [Concomitant]
  17. DEPAKOTE [Concomitant]
  18. GLUCOPHAGE [Concomitant]
  19. CLONAZEPAM [Concomitant]
  20. ATIVAN [Concomitant]
  21. RESTORIL [Concomitant]
     Dates: start: 19940101
  22. GLUCOTROL [Concomitant]
  23. ZOLOFT [Concomitant]
  24. ACTOS [Concomitant]
  25. AMBIEN [Concomitant]
  26. REPAGLINIDE [Concomitant]
     Dates: start: 20020101
  27. LITHIUM CARBONATE [Concomitant]
     Dates: start: 19940101
  28. AMARYL [Concomitant]
  29. COGENTIN [Concomitant]
     Dates: start: 19940101
  30. HALDOL [Concomitant]
     Dates: start: 19940101

REACTIONS (9)
  - BACK PAIN [None]
  - DIABETIC FOOT [None]
  - DIABETIC KETOACIDOSIS [None]
  - DIABETIC NEUROPATHY [None]
  - HYPERGLYCAEMIA [None]
  - MUSCULAR WEAKNESS [None]
  - MYALGIA [None]
  - PANCREATITIS [None]
  - TYPE 2 DIABETES MELLITUS [None]
